FAERS Safety Report 7715685-1 (Version None)
Quarter: 2011Q3

REPORT INFORMATION
  Report Type: 
  Country: None (occurrence: None)
  Receive Date: 20110823
  Receipt Date: 20110811
  Transmission Date: 20111222
  Serious: Yes (Disabling, Other)
  Sender: FDA-Public Use
  Company Number: 2011AT000299

PATIENT
  Age: 55 Year
  Sex: Male

DRUGS (1)
  1. THEOPHYLLINE [Suspect]
     Indication: PRODUCT USED FOR UNKNOWN INDICATION
     Dosage: 1X;PO
     Route: 048

REACTIONS (5)
  - ACCIDENTAL EXPOSURE [None]
  - AMNESIA [None]
  - STATUS EPILEPTICUS [None]
  - OVERDOSE [None]
  - BRAIN INJURY [None]
